FAERS Safety Report 24297260 (Version 3)
Quarter: 2025Q3

REPORT INFORMATION
  Report Type: Report from Study
  Country: US (occurrence: US)
  Receive Date: 20240909
  Receipt Date: 20250810
  Transmission Date: 20251020
  Serious: No
  Sender: ALEXION PHARMACEUTICALS
  Company Number: US-ALXN-202409USA000122US

PATIENT
  Sex: Male

DRUGS (5)
  1. SOLIRIS [Suspect]
     Active Substance: ECULIZUMAB
     Indication: Myasthenia gravis
     Route: 065
  2. MESTINON [Concomitant]
     Active Substance: PYRIDOSTIGMINE BROMIDE
     Indication: Product used for unknown indication
     Route: 065
  3. MESTINON [Concomitant]
     Active Substance: PYRIDOSTIGMINE BROMIDE
     Route: 065
  4. Prednisone breckenridge [Concomitant]
     Indication: Product used for unknown indication
     Route: 065
  5. Prednisone breckenridge [Concomitant]
     Route: 065

REACTIONS (3)
  - Drug ineffective [Unknown]
  - Muscle fatigue [Unknown]
  - Patient dissatisfaction with treatment [Unknown]
